FAERS Safety Report 18234092 (Version 1)
Quarter: 2020Q3

REPORT INFORMATION
  Report Type: Report from Study
  Country: PE (occurrence: PE)
  Receive Date: 20200904
  Receipt Date: 20200904
  Transmission Date: 20201103
  Serious: Yes (Death)
  Sender: FDA-Public Use
  Company Number: PE-SEATTLE GENETICS-2020SGN03787

PATIENT
  Sex: Male

DRUGS (1)
  1. BRENTUXIMAB VEDOTIN [Suspect]
     Active Substance: BRENTUXIMAB VEDOTIN
     Indication: HODGKIN^S DISEASE
     Dosage: 122 MILLIGRAM
     Route: 042
     Dates: start: 20200626, end: 20200812

REACTIONS (1)
  - SARS-CoV-2 test positive [Fatal]
